FAERS Safety Report 23358030 (Version 1)
Quarter: 2024Q1

REPORT INFORMATION
  Report Type: Spontaneous
  Country: US (occurrence: None)
  Receive Date: 20240101
  Receipt Date: 20240101
  Transmission Date: 20240410
  Serious: Yes (Other)
  Sender: FDA-Public Use
  Company Number: None

PATIENT
  Age: 22 Year
  Sex: Female
  Weight: 63 kg

DRUGS (2)
  1. TERAZOSIN [Suspect]
     Active Substance: TERAZOSIN HYDROCHLORIDE
     Dosage: OTHER QUANTITY : 1 CAPSULE(S);?FREQUENCY : AT BEDTIME;?
     Route: 048
     Dates: start: 20231115
  2. TRIMETHOPRIM [Suspect]
     Active Substance: TRIMETHOPRIM
     Dosage: OTHER QUANTITY : 1 TABLET(S);?FREQUENCY : EVERY DAY BEFORE NOON;?
     Route: 048
     Dates: start: 20231115

REACTIONS (7)
  - Drug interaction [None]
  - Hypotension [None]
  - Dizziness [None]
  - Dizziness [None]
  - Euphoric mood [None]
  - Coordination abnormal [None]
  - Mental impairment [None]

NARRATIVE: CASE EVENT DATE: 20231201
